FAERS Safety Report 7013656-4 (Version None)
Quarter: 2010Q3

REPORT INFORMATION
  Report Type: 
  Country: None (occurrence: None)
  Receive Date: 20100924
  Receipt Date: 20090429
  Transmission Date: 20110219
  Serious: Yes (Death, Hospitalization)
  Sender: FDA-Public Use
  Company Number: PHHY2009US66404

PATIENT

DRUGS (2)
  1. EXJADE [Suspect]
     Indication: IRON OVERLOAD
     Dosage: 1500 MG DAILY
     Route: 048
  2. CHEMOTHERAPEUTICS,OTHER [Concomitant]
     Indication: ACUTE MYELOID LEUKAEMIA
     Route: 042

REACTIONS (5)
  - DIARRHOEA [None]
  - PANCYTOPENIA [None]
  - PNEUMONIA [None]
  - PYREXIA [None]
  - THERAPEUTIC AGENT TOXICITY [None]
